FAERS Safety Report 4379030-4 (Version None)
Quarter: 2004Q2

REPORT INFORMATION
  Report Type: 
  Country: None (occurrence: None)
  Receive Date: 20040601
  Receipt Date: 20040329
  Transmission Date: 20050107
  Serious: No
  Sender: FDA-Public Use
  Company Number: WAES 0403USA02563

PATIENT
  Age: 75 Year
  Sex: Female

DRUGS (9)
  1. ZETIA [Suspect]
     Dosage: 10MG/DAILY/PO
     Route: 048
  2. ACCUPRIL [Concomitant]
  3. ADVAIR DISKUS 100/50 [Concomitant]
  4. ATIVAN [Concomitant]
  5. ECOTRIN [Concomitant]
  6. FOSAMAX [Concomitant]
  7. LIPITOR [Concomitant]
  8. NEXIUM [Concomitant]
  9. TOPROL-XL [Concomitant]

REACTIONS (1)
  - HAIR TEXTURE ABNORMAL [None]
